FAERS Safety Report 10474651 (Version 2)
Quarter: 2014Q3

REPORT INFORMATION
  Report Type: Spontaneous
  Country: US (occurrence: US)
  Receive Date: 20140925
  Receipt Date: 20140925
  Transmission Date: 20150326
  Serious: Yes (Other)
  Sender: FDA-Public Use
  Company Number: US-CIPLA LTD.-2014US01444

PATIENT
  Sex: Female

DRUGS (3)
  1. VINORELBINE [Suspect]
     Active Substance: VINORELBINE\VINORELBINE TARTRATE
     Indication: HODGKIN^S DISEASE
     Dosage: 25 MG/M2/DOSE, ADMINISTERED INTRAVENOUSLY OVER 6 TO 10 MINUTES ON DAYS 1 AND 8 OVER 100 MINUTES
  2. GEMCITABINE [Suspect]
     Active Substance: GEMCITABINE\GEMCITABINE HYDROCHLORIDE
     Indication: HODGKIN^S DISEASE
     Dosage: 1,000 MG/M2/DOSE IV OVER 100 MINUTES ON DAYS 1 AND 8 OF EACH 21-DAY TREATMENT CYCLE
     Route: 042
  3. GRANULOCYTE COLONY-STIMULATING FACTOR [Suspect]
     Active Substance: GRANULOCYTE COLONY-STIMULATING FACTOR NOS
     Indication: HODGKIN^S DISEASE
     Dosage: 5 MICROG/KG/DOSE DAILY STARTING ON DAY 9.

REACTIONS (4)
  - Recall phenomenon [Unknown]
  - Pericardial effusion [Recovered/Resolved]
  - Weight increased [Unknown]
  - Oedema [Unknown]
